FAERS Safety Report 22958570 (Version 3)
Quarter: 2023Q4

REPORT INFORMATION
  Report Type: Spontaneous
  Country: US (occurrence: US)
  Receive Date: 20230919
  Receipt Date: 20231018
  Transmission Date: 20240110
  Serious: No
  Sender: FDA-Public Use
  Company Number: US-BAUSCHBL-2023BNL008358

PATIENT
  Age: 77 Year
  Sex: Male

DRUGS (2)
  1. PROLENSA [Suspect]
     Active Substance: BROMFENAC SODIUM
     Indication: Postoperative care
     Dosage: ABOUT 45 DAYS AGO
     Route: 047
     Dates: start: 202307
  2. PROLENSA [Suspect]
     Active Substance: BROMFENAC SODIUM
     Dosage: ABOUT 45 DAYS AGO (DOSE INCREASED)
     Route: 047
     Dates: start: 2023

REACTIONS (3)
  - Migraine [Not Recovered/Not Resolved]
  - Vision blurred [Not Recovered/Not Resolved]
  - Photophobia [Not Recovered/Not Resolved]

NARRATIVE: CASE EVENT DATE: 20230101
